FAERS Safety Report 11107002 (Version 2)
Quarter: 2015Q2

REPORT INFORMATION
  Report Type: Spontaneous
  Country: FR (occurrence: FR)
  Receive Date: 20150512
  Receipt Date: 20150515
  Transmission Date: 20150821
  Serious: Yes (Hospitalization)
  Sender: FDA-Public Use
  Company Number: FR-009507513-1505FRA002837

PATIENT
  Age: 82 Year
  Sex: Male

DRUGS (9)
  1. KARDEGIC [Concomitant]
     Active Substance: ASPIRIN LYSINE
  2. ESOMEPRAZOLE [Concomitant]
     Active Substance: ESOMEPRAZOLE
  3. LASILIX [Concomitant]
     Active Substance: FUROSEMIDE
  4. IPERTEN [Concomitant]
     Active Substance: MANIDIPINE
  5. AERIUS [Suspect]
     Active Substance: DESLORATADINE
     Indication: OFF LABEL USE
     Dosage: 1 TABLET, ONCE A DAY (QD)
     Route: 048
     Dates: start: 2011
  6. COAPROVEL [Concomitant]
     Active Substance: HYDROCHLOROTHIAZIDE\IRBESARTAN
  7. ZOCOR [Concomitant]
     Active Substance: SIMVASTATIN
     Route: 048
  8. INSULIN [Concomitant]
     Active Substance: INSULIN NOS
  9. DOLIPRANE [Concomitant]
     Active Substance: ACETAMINOPHEN

REACTIONS (4)
  - Off label use [Unknown]
  - Drug ineffective for unapproved indication [Unknown]
  - Haemorrhage [Unknown]
  - Anaemia [Unknown]

NARRATIVE: CASE EVENT DATE: 20150507
